FAERS Safety Report 15331711 (Version 1)
Quarter: 2018Q4

REPORT INFORMATION
  Report Type: Spontaneous
  Country: None (occurrence: US)
  Receive Date: 20180829
  Receipt Date: 20180829
  Transmission Date: 20190204
  Serious: No
  Sender: FDA-Public Use
  Company Number: US-MEDAC PHARMA, INC.-2054438

PATIENT
  Age: 87 Year
  Weight: 40.46 kg

DRUGS (1)
  1. RASUVO [Suspect]
     Active Substance: METHOTREXATE SODIUM
     Dates: start: 201805, end: 201807

REACTIONS (5)
  - Oral mucosal eruption [Recovered/Resolved]
  - Feeding disorder [Recovered/Resolved]
  - Weight decreased [Recovering/Resolving]
  - Oral mucosal blistering [Recovered/Resolved]
  - Oropharyngeal blistering [Recovered/Resolved]

NARRATIVE: CASE EVENT DATE: 201805
